FAERS Safety Report 9773087 (Version 2)
Quarter: 2014Q1

REPORT INFORMATION
  Report Type: Spontaneous
  Country: GB (occurrence: GB)
  Receive Date: 20131219
  Receipt Date: 20140320
  Transmission Date: 20141002
  Serious: Yes (Other)
  Sender: FDA-Public Use
  Company Number: PHHY2013GB146111

PATIENT
  Age: 46 Year
  Sex: Male
  Weight: 82.9 kg

DRUGS (1)
  1. VENLAFAXINE HYDROCHLORIDE [Suspect]
     Indication: DEPRESSION
     Dosage: 37.5 MG, BID
     Route: 048
     Dates: start: 20131118

REACTIONS (4)
  - Ejaculation disorder [Not Recovered/Not Resolved]
  - Musculoskeletal stiffness [Recovering/Resolving]
  - Tremor [Not Recovered/Not Resolved]
  - Anorgasmia [Not Recovered/Not Resolved]
